FAERS Safety Report 25370835 (Version 8)
Quarter: 2025Q3

REPORT INFORMATION
  Report Type: Report from Study
  Country: US (occurrence: US)
  Receive Date: 20250528
  Receipt Date: 20250828
  Transmission Date: 20251021
  Serious: No
  Sender: SANDOZ
  Company Number: US-SANDOZ-SDZ2025US036145

PATIENT
  Age: 13 Year
  Sex: Male

DRUGS (8)
  1. OMNITROPE [Suspect]
     Active Substance: SOMATROPIN
     Indication: Hypopituitarism
     Dosage: 2.6 MG, QD
     Route: 058
     Dates: start: 20250417
  2. OMNITROPE [Suspect]
     Active Substance: SOMATROPIN
     Indication: Hypopituitarism
     Dosage: 2.6 MG, QD
     Route: 058
     Dates: start: 20250417
  3. OMNITROPE [Suspect]
     Active Substance: SOMATROPIN
     Dosage: 2.6 MG, QD
     Route: 058
     Dates: start: 20250507, end: 20250806
  4. OMNITROPE [Suspect]
     Active Substance: SOMATROPIN
     Dosage: 2.6 MG, QD
     Route: 058
     Dates: start: 20250507, end: 20250806
  5. OMNITROPE [Suspect]
     Active Substance: SOMATROPIN
     Dosage: 2.6 MG, QD, 10 MG/1.5 ML
     Route: 058
  6. OMNITROPE [Suspect]
     Active Substance: SOMATROPIN
     Dosage: 2.6 MG, QD, 10 MG/1.5 ML
     Route: 058
  7. OMNITROPE [Suspect]
     Active Substance: SOMATROPIN
     Dosage: 2.6 MG, QD
     Route: 058
  8. OMNITROPE [Suspect]
     Active Substance: SOMATROPIN
     Dosage: 2.6 MG, QD
     Route: 058

REACTIONS (4)
  - Injection site discharge [Unknown]
  - Incorrect dose administered by device [Unknown]
  - Product knowledge deficit [Unknown]
  - Device leakage [Unknown]

NARRATIVE: CASE EVENT DATE: 20250507
